FAERS Safety Report 7947141-X (Version None)
Quarter: 2011Q4

REPORT INFORMATION
  Report Type: 
  Country: None (occurrence: None)
  Receive Date: 20111129
  Receipt Date: 20111116
  Transmission Date: 20120403
  Serious: Yes (Hospitalization)
  Sender: FDA-Public Use
  Company Number: US-ASTRAZENECA-2011SE69574

PATIENT
  Age: 73 Year
  Sex: Female
  Weight: 69.4 kg

DRUGS (7)
  1. VITAMIN D [Concomitant]
  2. BYSTOLIC [Concomitant]
  3. ASPIRIN [Concomitant]
  4. FAMOTIDINE [Concomitant]
  5. POLY IRON [Concomitant]
  6. ASCORBIC ACID [Concomitant]
  7. NEXIUM [Suspect]
     Indication: GASTROOESOPHAGEAL REFLUX DISEASE
     Dosage: TWO TIMES A DAY
     Route: 048

REACTIONS (5)
  - ANXIETY [None]
  - INAPPROPRIATE SCHEDULE OF DRUG ADMINISTRATION [None]
  - NON-CARDIAC CHEST PAIN [None]
  - GASTROOESOPHAGEAL REFLUX DISEASE [None]
  - DRUG DOSE OMISSION [None]
